FAERS Safety Report 10409240 (Version 1)
Quarter: 2014Q3

REPORT INFORMATION
  Report Type: Spontaneous
  Country: TW (occurrence: TW)
  Receive Date: 20140826
  Receipt Date: 20140826
  Transmission Date: 20150326
  Serious: Yes (Death)
  Sender: FDA-Public Use
  Company Number: TW-CELGENEUS-153-20785-14082462

PATIENT
  Age: 65 Year
  Sex: Male

DRUGS (4)
  1. THALIDOMIDE [Suspect]
     Active Substance: THALIDOMIDE
     Dosage: 50 MILLIGRAM
     Route: 048
  2. THALIDOMIDE [Suspect]
     Active Substance: THALIDOMIDE
     Indication: HEPATOCELLULAR CARCINOMA
     Dosage: 100 MILLIGRAM
     Route: 048
  3. FUROSEMIDE. [Concomitant]
     Active Substance: FUROSEMIDE
     Indication: ASCITES
     Dosage: 80 MILLIGRAM
     Route: 048
  4. SPIRONOLACTONE. [Concomitant]
     Active Substance: SPIRONOLACTONE
     Indication: ASCITES
     Dosage: 200 MILLIGRAM
     Route: 065

REACTIONS (3)
  - Duodenal ulcer perforation [Fatal]
  - Rash [Unknown]
  - Multi-organ failure [Fatal]
